FAERS Safety Report 18171338 (Version 4)
Quarter: 2025Q4

REPORT INFORMATION
  Report Type: Report from Study
  Country: US (occurrence: US)
  Receive Date: 20200819
  Receipt Date: 20251008
  Transmission Date: 20260117
  Serious: Yes (Hospitalization, Other)
  Sender: TAKEDA
  Company Number: US-SHIRE-US202026525

PATIENT
  Age: 52 Year
  Sex: Male

DRUGS (3)
  1. HEMOFIL [Suspect]
     Active Substance: ANTIHEMOPHILIC FACTOR HUMAN
     Indication: Haemorrhage
     Dosage: UNK
  2. HEMOFIL [Suspect]
     Active Substance: ANTIHEMOPHILIC FACTOR HUMAN
     Dosage: 4700 INTERNATIONAL UNIT
  3. HEMOFIL [Suspect]
     Active Substance: ANTIHEMOPHILIC FACTOR HUMAN
     Dosage: 4700 INTERNATIONAL UNIT, Q72H

REACTIONS (3)
  - Pericardial effusion [Unknown]
  - Muscle strain [Unknown]
  - Creatinine renal clearance increased [Unknown]

NARRATIVE: CASE EVENT DATE: 20200730
